FAERS Safety Report 19900546 (Version 2)
Quarter: 2022Q4

REPORT INFORMATION
  Report Type: Report from Study
  Country: DE (occurrence: DE)
  Receive Date: 20210929
  Receipt Date: 20221128
  Transmission Date: 20230112
  Serious: Yes (Other)
  Sender: FDA-Public Use
  Company Number: DE-002147023-NVSC2021DE205114

PATIENT
  Sex: Female
  Weight: 68 kg

DRUGS (4)
  1. EXEMESTANE [Suspect]
     Active Substance: EXEMESTANE
     Indication: Hormone receptor positive HER2 negative breast cancer
     Dosage: 25 MG, 1X/DAY
     Route: 048
     Dates: start: 20180823, end: 20210503
  2. EXEMESTANE [Suspect]
     Active Substance: EXEMESTANE
     Dosage: 25 MG, 1X/DAY
     Dates: start: 20210504
  3. KISQALI [Suspect]
     Active Substance: RIBOCICLIB
     Indication: Hormone receptor positive HER2 negative breast cancer
     Dosage: 600 MG, 1X/DAY, 21 DAYS INTAKE, 7 DAYS PAUSE
     Route: 048
     Dates: start: 20210211, end: 20210503
  4. KISQALI [Suspect]
     Active Substance: RIBOCICLIB
     Dosage: 600 MG, 1X/DAY. 21 DAYS INTAKE, 7 DAYS PAUSE
     Route: 048
     Dates: start: 20180823, end: 20210203

REACTIONS (3)
  - Pancreatitis [Recovering/Resolving]
  - Leukopenia [Recovered/Resolved]
  - Cholecystitis [Recovered/Resolved]

NARRATIVE: CASE EVENT DATE: 20210311
